FAERS Safety Report 4474065-5 (Version None)
Quarter: 2004Q4

REPORT INFORMATION
  Report Type: 
  Country: None (occurrence: None)
  Receive Date: 20041008
  Receipt Date: 20040922
  Transmission Date: 20050328
  Serious: Yes (Hospitalization, Other)
  Sender: FDA-Public Use
  Company Number: USA040978871

PATIENT
  Age: 35 Year
  Sex: Female
  Weight: 80 kg

DRUGS (5)
  1. HUMALOG [Suspect]
     Indication: DIABETES MELLITUS
     Dates: start: 20000101
  2. HUMULIN N [Suspect]
     Indication: DIABETES MELLITUS
     Dates: start: 19850101
  3. INSULIN [Suspect]
     Indication: DIABETES MELLITUS
     Dates: start: 19680601, end: 19850101
  4. ESTROGEN NOS [Concomitant]
  5. MULTIVITAMIN [Concomitant]

REACTIONS (23)
  - AGE INDETERMINATE MYOCARDIAL INFARCTION [None]
  - ANAEMIA [None]
  - ANOREXIA [None]
  - BULIMIA NERVOSA [None]
  - CARDIAC FAILURE [None]
  - CHEST PAIN [None]
  - DEPRESSION [None]
  - DIABETES MELLITUS INADEQUATE CONTROL [None]
  - DIABETES MELLITUS INSULIN-DEPENDENT [None]
  - DRUG EXPOSURE DURING PREGNANCY [None]
  - FEELING ABNORMAL [None]
  - HEADACHE [None]
  - HYPERHIDROSIS [None]
  - KIDNEY INFECTION [None]
  - NEPHROLITHIASIS [None]
  - PHARMACEUTICAL PRODUCT COMPLAINT [None]
  - POST PROCEDURAL COMPLICATION [None]
  - POST-TRAUMATIC STRESS DISORDER [None]
  - STILLBIRTH [None]
  - TREMOR [None]
  - UTERINE CANCER [None]
  - WEIGHT DECREASED [None]
  - WEIGHT INCREASED [None]
